FAERS Safety Report 9814934 (Version 2)
Quarter: 2014Q1

REPORT INFORMATION
  Report Type: Report from Study
  Country: AR (occurrence: AR)
  Receive Date: 20140113
  Receipt Date: 20140219
  Transmission Date: 20141002
  Serious: Yes (Other)
  Sender: FDA-Public Use
  Company Number: AR-ABBVIE-14P-007-1187016-00

PATIENT
  Age: 74 Year
  Sex: Male

DRUGS (1)
  1. ZEMPLAR [Suspect]
     Indication: RENAL FAILURE CHRONIC
     Dates: start: 20100901

REACTIONS (11)
  - Peripheral arterial occlusive disease [Recovering/Resolving]
  - Vascular graft [Unknown]
  - Vascular graft [Unknown]
  - Vascular graft [Unknown]
  - Stent placement [Unknown]
  - Stent placement [Unknown]
  - Stent placement [Unknown]
  - Stent placement [Unknown]
  - Carotid artery occlusion [Not Recovered/Not Resolved]
  - Pain in extremity [Not Recovered/Not Resolved]
  - Hypertension [Not Recovered/Not Resolved]
